FAERS Safety Report 24768086 (Version 1)
Quarter: 2024Q4

REPORT INFORMATION
  Report Type: Spontaneous
  Country: US (occurrence: US)
  Receive Date: 20241223
  Receipt Date: 20241223
  Transmission Date: 20250115
  Serious: Yes (Other)
  Sender: NEUROCRINE BIOSCIENCES
  Company Number: US-NEUROCRINE BIOSCIENCES INC.-2024NBI12534

PATIENT
  Sex: Male

DRUGS (1)
  1. INGREZZA [Suspect]
     Active Substance: VALBENAZINE
     Indication: Product used for unknown indication
     Dosage: 160 MILLIGRAM, QD
     Route: 065

REACTIONS (4)
  - Major depression [Unknown]
  - Drug ineffective [Unknown]
  - Extrapyramidal disorder [Unknown]
  - Prescribed overdose [Unknown]
